FAERS Safety Report 16065116 (Version 1)
Quarter: 2019Q1

REPORT INFORMATION
  Report Type: Spontaneous
  Country: NL (occurrence: NL)
  Receive Date: 20190313
  Receipt Date: 20190313
  Transmission Date: 20190418
  Serious: Yes (Disabling, Other)
  Sender: FDA-Public Use
  Company Number: NL-AUROBINDO-AUR-APL-2019-012422

PATIENT

DRUGS (5)
  1. FLUVOXAMINE TABLET [Suspect]
     Active Substance: FLUVOXAMINE
     Indication: DEPRESSION
     Dosage: 50 MILLIGRAM
     Route: 065
     Dates: start: 20020628, end: 2005
  2. PAROXETINE FILM-COATED TABLET [Suspect]
     Active Substance: PAROXETINE
     Indication: POST-TRAUMATIC STRESS DISORDER
     Dosage: 20 MILLIGRAM
     Route: 065
     Dates: start: 20011116, end: 20020608
  3. PAROXETINE FILM-COATED TABLET [Suspect]
     Active Substance: PAROXETINE
     Indication: DEPRESSION
  4. PROMETHAZINE [Concomitant]
     Active Substance: PROMETHAZINE\PROMETHAZINE HYDROCHLORIDE
     Indication: STRESS
     Dosage: UNK
     Route: 065
     Dates: start: 20011031
  5. SEROXAT [Suspect]
     Active Substance: PAROXETINE HYDROCHLORIDE
     Indication: DEPRESSION
     Dosage: 20 MILLIGRAM
     Route: 065
     Dates: start: 20010626, end: 20011115

REACTIONS (14)
  - Asthenia [Unknown]
  - Psychotic disorder [Unknown]
  - Suicide attempt [Unknown]
  - Photophobia [Unknown]
  - Hyperacusis [Unknown]
  - Aggression [Recovered/Resolved]
  - Affect lability [Unknown]
  - Abnormal behaviour [Unknown]
  - Emotional disorder [Unknown]
  - Nightmare [Unknown]
  - Derealisation [Unknown]
  - Anxiety [Unknown]
  - Suicidal ideation [Recovered/Resolved]
  - Major depression [Unknown]
